FAERS Safety Report 14427426 (Version 4)
Quarter: 2019Q2

REPORT INFORMATION
  Report Type: Spontaneous
  Country: US (occurrence: US)
  Receive Date: 20180123
  Receipt Date: 20190419
  Transmission Date: 20190711
  Serious: Yes (Disabling, Other)
  Sender: FDA-Public Use
  Company Number: US-REGENERON PHARMACEUTICALS, INC.-2018-11070

PATIENT

DRUGS (9)
  1. MULTIVITAMINS WITH IRON            /01824901/ [Concomitant]
     Indication: PRODUCT USED FOR UNKNOWN INDICATION
  2. EYLEA [Suspect]
     Active Substance: AFLIBERCEPT
     Indication: RETINAL VEIN OCCLUSION
     Dosage: 2 MG, EVERY 4 WEEKS, OD
     Route: 031
     Dates: start: 20160405
  3. EYLEA [Suspect]
     Active Substance: AFLIBERCEPT
     Indication: MACULAR OEDEMA
     Dosage: 2 MG, EVERY 4 WEEKS, OD, LAST DOSE
     Route: 031
     Dates: start: 20180112, end: 20180112
  4. DOCUSATE;IRON [Concomitant]
     Indication: PRODUCT USED FOR UNKNOWN INDICATION
  5. OLMESARTAN [Concomitant]
     Active Substance: OLMESARTAN
     Indication: PRODUCT USED FOR UNKNOWN INDICATION
     Dosage: 40 MG, UNK
  6. AVODART [Concomitant]
     Active Substance: DUTASTERIDE
     Indication: PRODUCT USED FOR UNKNOWN INDICATION
  7. FOLIC ACID. [Concomitant]
     Active Substance: FOLIC ACID
     Indication: PRODUCT USED FOR UNKNOWN INDICATION
  8. PRAVASTATIN. [Concomitant]
     Active Substance: PRAVASTATIN
     Indication: PRODUCT USED FOR UNKNOWN INDICATION
  9. VITAMIN B COMPLEX WITH C [Concomitant]
     Active Substance: ASCORBIC ACID\CALCIUM PANTOTHENATE\CYANOCOBALAMIN\NIACINAMIDE\PYRIDOXINE HYDROCHLORIDE\RIBOFLAVIN\THIAMINE MONONITRATE
     Indication: PRODUCT USED FOR UNKNOWN INDICATION

REACTIONS (11)
  - Blindness transient [Recovered/Resolved]
  - Uveitis [Recovered/Resolved]
  - Conjunctivitis allergic [Unknown]
  - Ocular hypertension [Unknown]
  - Dry age-related macular degeneration [Unknown]
  - Maculopathy [Unknown]
  - Dry eye [Unknown]
  - Glaucoma [Unknown]
  - Ectropion [Unknown]
  - Intraocular pressure increased [Recovered/Resolved]
  - Intraocular lens implant [Unknown]

NARRATIVE: CASE EVENT DATE: 20180113
